FAERS Safety Report 8544245-8 (Version None)
Quarter: 2012Q3

REPORT INFORMATION
  Report Type: 
  Country: None (occurrence: None)
  Receive Date: 20120719
  Receipt Date: 20120719
  Transmission Date: 20120928
  Serious: Yes (Hospitalization)
  Sender: FDA-Public Use
  Company Number: None

PATIENT
  Age: 81 Year
  Sex: Male
  Weight: 94.8 kg

DRUGS (1)
  1. PRADAXA [Suspect]

REACTIONS (3)
  - LOWER GASTROINTESTINAL HAEMORRHAGE [None]
  - CHEST PAIN [None]
  - OESOPHAGITIS [None]
